FAERS Safety Report 4622276-8 (Version None)
Quarter: 2005Q1

REPORT INFORMATION
  Report Type: 
  Country: None (occurrence: None)
  Receive Date: 20050328
  Receipt Date: 20050310
  Transmission Date: 20050727
  Serious: Yes (Hospitalization)
  Sender: FDA-Public Use
  Company Number: 172966

PATIENT
  Age: 36 Year
  Sex: Female
  Weight: 59 kg

DRUGS (13)
  1. AVONEX [Suspect]
     Indication: MULTIPLE SCLEROSIS
     Dosage: 30 UG; QW; IM
     Route: 030
     Dates: start: 20010101
  2. PLACEBO [Concomitant]
  3. OXANEST [Concomitant]
  4. KETORIN [Concomitant]
  5. BURANA [Concomitant]
  6. DIAPAM [Concomitant]
  7. LIDOCAIN [Concomitant]
  8. ESMERON [Concomitant]
  9. FENTANYL [Concomitant]
  10. DHBP [Concomitant]
  11. TORADOL [Concomitant]
  12. ZITHROMAX [Concomitant]
  13. THYROXIN [Concomitant]

REACTIONS (2)
  - POSTOPERATIVE WOUND COMPLICATION [None]
  - THYROID ADENOMA [None]
